FAERS Safety Report 25498660 (Version 2)
Quarter: 2025Q3

REPORT INFORMATION
  Report Type: Report from Study
  Country: US (occurrence: US)
  Receive Date: 20250701
  Receipt Date: 20250925
  Transmission Date: 20251021
  Serious: Yes (Hospitalization)
  Sender: ASTELLAS
  Company Number: US-ASTELLAS-2023US019448

PATIENT
  Age: 22 Year
  Sex: Female

DRUGS (3)
  1. GILTERITINIB [Suspect]
     Active Substance: GILTERITINIB
     Indication: Acute monocytic leukaemia
     Route: 048
  2. GILTERITINIB [Suspect]
     Active Substance: GILTERITINIB
     Indication: Graft versus host disease
     Route: 048
     Dates: start: 20230606
  3. REZUROCK [Concomitant]
     Active Substance: BELUMOSUDIL
     Indication: Graft versus host disease
     Dosage: ONGOING
     Route: 050
     Dates: start: 20240727

REACTIONS (4)
  - Migraine [Unknown]
  - Pain [Unknown]
  - Depression [Unknown]
  - Off label use [Unknown]
